FAERS Safety Report 6206682-6 (Version None)
Quarter: 2009Q2

REPORT INFORMATION
  Report Type: 
  Country: None (occurrence: None)
  Receive Date: 20090528
  Receipt Date: 20090526
  Transmission Date: 20091009
  Serious: Yes (Other)
  Sender: FDA-Public Use
  Company Number: IL-ROXANE LABORATORIES, INC.-2009-RO-00526RO

PATIENT
  Age: 81 Year
  Sex: Female

DRUGS (1)
  1. PREDNISONE [Suspect]
     Indication: LUNG DISORDER
     Route: 048

REACTIONS (1)
  - FEMORAL NECK FRACTURE [None]
